FAERS Safety Report 15689696 (Version 1)
Quarter: 2018Q4

REPORT INFORMATION
  Report Type: Spontaneous
  Country: US (occurrence: US)
  Receive Date: 20181205
  Receipt Date: 20181205
  Transmission Date: 20190205
  Serious: No
  Sender: FDA-Public Use
  Company Number: US-NOVOPROD-584970

PATIENT
  Age: 58 Year
  Sex: Male
  Weight: 97.51 kg

DRUGS (4)
  1. TOUJEO [Concomitant]
     Active Substance: INSULIN GLARGINE
     Indication: TYPE 1 DIABETES MELLITUS
     Dosage: UNK
  2. NOVOLIN R [Suspect]
     Active Substance: INSULIN HUMAN
     Indication: TYPE 1 DIABETES MELLITUS
     Dosage: 21 U, UNK
     Route: 058
     Dates: start: 2016
  3. NOVOLIN R [Suspect]
     Active Substance: INSULIN HUMAN
     Dosage: SLIDING SCALE
     Route: 058
     Dates: start: 201801
  4. METFORMIN [Concomitant]
     Active Substance: METFORMIN HYDROCHLORIDE
     Indication: TYPE 1 DIABETES MELLITUS

REACTIONS (8)
  - Fatigue [Recovered/Resolved]
  - Feeling hot [Recovered/Resolved]
  - Drug ineffective [Recovered/Resolved]
  - Influenza like illness [Unknown]
  - Blood glucose decreased [Recovered/Resolved]
  - Heart rate increased [Recovered/Resolved]
  - Blood glucose increased [Recovered/Resolved]
  - Product quality issue [Recovered/Resolved]

NARRATIVE: CASE EVENT DATE: 201801
